FAERS Safety Report 9391515 (Version 1)
Quarter: 2013Q3

REPORT INFORMATION
  Report Type: Report from Study
  Country: FR (occurrence: FR)
  Receive Date: 20130709
  Receipt Date: 20130709
  Transmission Date: 20140515
  Serious: Yes (Hospitalization, Other)
  Sender: FDA-Public Use
  Company Number: PHHY2013FR071667

PATIENT
  Age: 73 Year
  Sex: Male

DRUGS (4)
  1. CERTICAN [Suspect]
     Indication: IMMUNOSUPPRESSION
     Dosage: 0.5 MG, BID
     Route: 048
     Dates: start: 20120127, end: 20120314
  2. ADVAGRAF [Concomitant]
     Indication: IMMUNOSUPPRESSION
     Dosage: 4 MG
     Dates: start: 20120127
  3. CELLCEPT [Concomitant]
     Indication: IMMUNOSUPPRESSION
     Dosage: 2 G, UNK
     Dates: start: 20120109
  4. CORTANCYL [Concomitant]
     Indication: IMMUNOSUPPRESSION
     Dosage: 5 MG
     Dates: start: 20120420

REACTIONS (3)
  - Renal failure acute [Recovered/Resolved with Sequelae]
  - Device occlusion [Unknown]
  - Pyelocaliectasis [Unknown]
